FAERS Safety Report 8357919-9 (Version None)
Quarter: 2012Q2

REPORT INFORMATION
  Report Type: 
  Country: None (occurrence: None)
  Receive Date: 20120514
  Receipt Date: 20120504
  Transmission Date: 20120825
  Serious: Yes (Hospitalization)
  Sender: FDA-Public Use
  Company Number: FR-JNJFOC-20120509524

PATIENT
  Sex: Male
  Weight: 85 kg

DRUGS (3)
  1. CANDESARTAN CILEXETIL [Concomitant]
     Route: 065
  2. PLAVIX [Concomitant]
     Route: 065
     Dates: start: 20120201
  3. STELARA [Suspect]
     Indication: PSORIASIS
     Dosage: 1 DOSES AS PER RECOMMENDED SCHEDULE
     Route: 058
     Dates: start: 20110201

REACTIONS (1)
  - MYOCARDIAL INFARCTION [None]
